FAERS Safety Report 4316599-X (Version None)
Quarter: 2004Q1

REPORT INFORMATION
  Report Type: 
  Country: None (occurrence: None)
  Receive Date: 20040312
  Receipt Date: 20040128
  Transmission Date: 20041129
  Serious: No
  Sender: FDA-Public Use
  Company Number: 7480

PATIENT
  Age: 58 Year
  Sex: Female

DRUGS (3)
  1. PAMIDRONATE DISODIUM [Suspect]
     Indication: MULTIPLE MYELOMA
     Dosage: 350 MG PER_CYCLE/50 MG MONTHLY
     Route: 042
     Dates: start: 19990801
  2. PAMIDRONATE DISODIUM [Suspect]
     Indication: MULTIPLE MYELOMA
     Dosage: 350 MG PER_CYCLE/50 MG MONTHLY
     Route: 042
  3. THALIDOMIDE [Concomitant]

REACTIONS (3)
  - GLOMERULOSCLEROSIS [None]
  - RENAL INTERSTITIAL FIBROSIS [None]
  - RENAL TUBULAR ATROPHY [None]
